FAERS Safety Report 8217854-3 (Version None)
Quarter: 2012Q1

REPORT INFORMATION
  Report Type: 
  Country: None (occurrence: None)
  Receive Date: 20120314
  Receipt Date: 20120228
  Transmission Date: 20120608
  Serious: Yes (Congenital Anomaly)
  Sender: FDA-Public Use
  Company Number: FK201200618

PATIENT

DRUGS (2)
  1. ROPIVACAINE (MANUFACTURER UNKNOWN (ROPIVACAINE) [Suspect]
     Indication: ANALGESIC THERAPY
     Dosage: TRANSPLACENTAL
     Route: 064
  2. FENTANYL CITRATE [Suspect]
     Indication: PRODUCT USED FOR UNKNOWN INDICATION
     Dosage: 2 UG/ML, TRANSPLACENTAL
     Route: 064

REACTIONS (2)
  - HIP DYSPLASIA [None]
  - MATERNAL DRUGS AFFECTING FOETUS [None]
